FAERS Safety Report 9828086 (Version 1)
Quarter: 2013Q4

REPORT INFORMATION
  Report Type: Spontaneous
  Country: US (occurrence: None)
  Receive Date: 20131120
  Receipt Date: 20131120
  Transmission Date: 20140711
  Serious: No
  Sender: FDA-Public Use
  Company Number: 1000048425

PATIENT
  Age: 76 Year
  Sex: Male

DRUGS (7)
  1. VIIBRYD (VILAZODONE HYDROCHLORIDE) (10 MILLIGRAM, TABLETS) [Suspect]
     Indication: DEPRESSION
     Route: 048
     Dates: start: 201301, end: 2013
  2. VIIBRYD (VILAZODONE HYROCHLORIDE) (TABLETS) [Suspect]
     Indication: DEPRESSION
     Route: 048
     Dates: start: 201308, end: 20130902
  3. COUMADIN (WARFARIN SODIUM) [Concomitant]
  4. ASPIRIN (ACETYLSALICYLIC ACDI) (ACETYLSALICYLIC ACID) [Concomitant]
  5. MVI (VITAMINS NOS) (VITAMINS NOS) [Concomitant]
  6. METOPROLOL (METOPROLOL) (METOPROLOL) [Concomitant]
  7. LORAZEPAM (LORAZEPAM) (LORAZEPAM) [Concomitant]

REACTIONS (15)
  - Diarrhoea [None]
  - Mood altered [None]
  - Irritability [None]
  - Agitation [None]
  - Dizziness [None]
  - Paraesthesia [None]
  - Anxiety [None]
  - Confusional state [None]
  - Headache [None]
  - Lethargy [None]
  - Emotional disorder [None]
  - Insomnia [None]
  - Hypomania [None]
  - Depression [None]
  - Feeling jittery [None]
